FAERS Safety Report 6181118-2 (Version None)
Quarter: 2009Q2

REPORT INFORMATION
  Report Type: 
  Country: None (occurrence: None)
  Receive Date: 20090506
  Receipt Date: 20090427
  Transmission Date: 20091009
  Serious: Yes (Other)
  Sender: FDA-Public Use
  Company Number: PHHY2009BR15811

PATIENT
  Age: 71 Year
  Sex: Female

DRUGS (3)
  1. DIOVAN [Suspect]
     Indication: HYPERTENSION
     Dosage: 1 TAB/DAY
     Route: 048
  2. DIOVAN [Suspect]
     Dosage: UNK
     Route: 048
     Dates: start: 20090420
  3. INDAPAMIDE [Concomitant]
     Dosage: 1 TABLET PER DAY
     Route: 048
     Dates: start: 20090420

REACTIONS (3)
  - BLOOD PRESSURE INCREASED [None]
  - POLLAKIURIA [None]
  - SOMNOLENCE [None]
